FAERS Safety Report 8795450 (Version 2)
Quarter: 2015Q1

REPORT INFORMATION
  Report Type: Report from Study
  Country: US (occurrence: US)
  Receive Date: 20120917
  Receipt Date: 20150331
  Transmission Date: 20150721
  Serious: Yes (Death)
  Sender: FDA-Public Use
  Company Number: US-ROCHE-1129182

PATIENT
  Sex: Female
  Weight: 60 kg

DRUGS (2)
  1. AVASTIN [Suspect]
     Active Substance: BEVACIZUMAB
     Indication: OVARIAN CANCER
     Dosage: DATE OF SERVICE ON  02/FEB/2007, 23/FEB/2007, 23/FEB/2007, 16/MAR/2007, 06/APR/2007, 27/APR/2007, 18
     Route: 065
     Dates: start: 20070112
  2. AVASTIN [Suspect]
     Active Substance: BEVACIZUMAB
     Indication: MALIGNANT NEOPLASM OF UTERINE ADNEXA

REACTIONS (2)
  - Death [Fatal]
  - Off label use [Unknown]
